FAERS Safety Report 6967649-3 (Version None)
Quarter: 2010Q3

REPORT INFORMATION
  Report Type: 
  Country: None (occurrence: None)
  Receive Date: 20100907
  Receipt Date: 20100826
  Transmission Date: 20110219
  Serious: Yes (Other)
  Sender: FDA-Public Use
  Company Number: GR-PFIZER INC-2009307014

PATIENT
  Age: 71 Year
  Sex: Female

DRUGS (2)
  1. VFEND [Suspect]
     Indication: FUNGAL INFECTION
     Dosage: 400 MG, EVERY 12H
     Route: 048
     Dates: start: 20091201, end: 20091202
  2. VFEND [Suspect]
     Dosage: 200MG, EVERY 12 H
     Route: 048
     Dates: start: 20091203, end: 20091206

REACTIONS (4)
  - COLOUR BLINDNESS [None]
  - COLOUR BLINDNESS ACQUIRED [None]
  - PHOTOPHOBIA [None]
  - VISION BLURRED [None]
